FAERS Safety Report 6510923-5 (Version None)
Quarter: 2009Q4

REPORT INFORMATION
  Report Type: 
  Country: None (occurrence: None)
  Receive Date: 20091222
  Receipt Date: 20090203
  Transmission Date: 20100525
  Serious: No
  Sender: FDA-Public Use
  Company Number: US-ASTRAZENECA-2009UW03182

PATIENT
  Age: 79 Year
  Sex: Female
  Weight: 68 kg

DRUGS (8)
  1. CRESTOR [Suspect]
     Indication: BLOOD CHOLESTEROL INCREASED
     Route: 048
     Dates: start: 20090127
  2. AZURE [Concomitant]
     Indication: HYPERTENSION
  3. ATENOLOL [Concomitant]
     Indication: HYPERTENSION
  4. DIURETIC [Concomitant]
  5. POTASSIUM [Concomitant]
  6. VITAMIN B NOS [Concomitant]
  7. VITAMIN C NOS [Concomitant]
  8. MULTI-VITAMIN [Concomitant]

REACTIONS (1)
  - PULMONARY CONGESTION [None]
